FAERS Safety Report 25171909 (Version 1)
Quarter: 2025Q2

REPORT INFORMATION
  Report Type: Spontaneous
  Country: IN (occurrence: IN)
  Receive Date: 20250408
  Receipt Date: 20250408
  Transmission Date: 20250717
  Serious: No
  Sender: ALKEM
  Company Number: IN-ALKEM LABORATORIES LIMITED-IN-ALKEM-2024-05959

PATIENT
  Age: 69 Year
  Sex: Male

DRUGS (1)
  1. ARIPIPRAZOLE [Suspect]
     Active Substance: ARIPIPRAZOLE
     Indication: Bipolar I disorder
     Dosage: 10 MILLIGRAM, QD (DAILY)
     Route: 048

REACTIONS (3)
  - Hyponatraemia [Unknown]
  - Hiccups [Recovered/Resolved]
  - Treatment failure [Unknown]
